FAERS Safety Report 15677256 (Version 1)
Quarter: 2018Q4

REPORT INFORMATION
  Report Type: Spontaneous
  Country: AU (occurrence: AU)
  Receive Date: 20181130
  Receipt Date: 20181130
  Transmission Date: 20190205
  Serious: Yes (Hospitalization)
  Sender: FDA-Public Use
  Company Number: AU-MYLANLABS-2018M1089264

PATIENT
  Age: 56 Year
  Sex: Male
  Weight: 111 kg

DRUGS (2)
  1. FLUCONAZOLE. [Suspect]
     Active Substance: FLUCONAZOLE
     Indication: METASTASES TO MENINGES
     Dosage: 2000 MILLIGRAM, Q6H
     Route: 048
     Dates: start: 201802
  2. AMPHOTERICIN B. [Suspect]
     Active Substance: AMPHOTERICIN B
     Indication: METASTASES TO MENINGES
     Dosage: 300 MILLIGRAM, QD
     Dates: start: 201802

REACTIONS (1)
  - Drug ineffective [Not Recovered/Not Resolved]

NARRATIVE: CASE EVENT DATE: 201802
